FAERS Safety Report 25394656 (Version 1)
Quarter: 2025Q2

REPORT INFORMATION
  Report Type: Report from Study
  Country: US (occurrence: US)
  Receive Date: 20250604
  Receipt Date: 20250604
  Transmission Date: 20250716
  Serious: Yes (Hospitalization)
  Sender: ALEXION PHARMACEUTICALS
  Company Number: US-AstraZeneca-CH-00883322A

PATIENT

DRUGS (3)
  1. BENRALIZUMAB [Suspect]
     Active Substance: BENRALIZUMAB
     Indication: Asthma
     Dosage: 30 MILLIGRAM, Q4W
  2. GLIPIZIDE [Concomitant]
     Active Substance: GLIPIZIDE
     Route: 065
  3. METFORMIN [Concomitant]
     Active Substance: METFORMIN HYDROCHLORIDE
     Route: 065

REACTIONS (5)
  - Asthma [Unknown]
  - Quality of life decreased [Unknown]
  - Back pain [Unknown]
  - Headache [Unknown]
  - Product dose omission issue [Unknown]
